FAERS Safety Report 4276658-7 (Version None)
Quarter: 2004Q1

REPORT INFORMATION
  Report Type: 
  Country: None (occurrence: None)
  Receive Date: 20040120
  Receipt Date: 20040109
  Transmission Date: 20041129
  Serious: Yes (Hospitalization)
  Sender: FDA-Public Use
  Company Number: A-CH2003-01864

PATIENT
  Age: 67 Year
  Sex: Male
  Weight: 103 kg

DRUGS (6)
  1. TRACLEER [Suspect]
     Indication: PULMONARY HYPERTENSION
     Dosage: 62.5 - 125 MG, BID, ORAL
     Route: 048
     Dates: start: 20021210, end: 20030107
  2. TRACLEER [Suspect]
     Indication: PULMONARY HYPERTENSION
     Dosage: 62.5 - 125 MG, BID, ORAL
     Route: 048
     Dates: start: 20030108
  3. LASIX [Concomitant]
  4. ALDACTONE [Concomitant]
  5. PREVISCAN (FLUINDIONE) [Concomitant]
  6. POTASSIUM CHLORIDE [Concomitant]

REACTIONS (4)
  - DERMATITIS PSORIASIFORM [None]
  - DERMATOSIS [None]
  - ECZEMA [None]
  - PRURITUS [None]
